FAERS Safety Report 4811898-7 (Version None)
Quarter: 2005Q4

REPORT INFORMATION
  Report Type: 
  Country: None (occurrence: None)
  Receive Date: 20051027
  Receipt Date: 20051027
  Transmission Date: 20060501
  Serious: Yes (Hospitalization)
  Sender: FDA-Public Use
  Company Number: None

PATIENT
  Sex: Male
  Weight: 87.9978 kg

DRUGS (13)
  1. SERTRALINE    100 MG    PFIZER [Suspect]
     Indication: DEPRESSION
     Dosage: 150 MG   DAILY   PO
     Route: 048
     Dates: start: 20041006, end: 20050603
  2. OMEPRAZOLE [Concomitant]
  3. NPH INSULIN [Concomitant]
  4. SIMVASTATIN [Concomitant]
  5. METOPROLOL [Concomitant]
  6. AMIODARONE HCL [Concomitant]
  7. GLYBURIDE [Concomitant]
  8. CLOPIDOGREL BISULFATE [Concomitant]
  9. MEXILETINE [Concomitant]
  10. LISINOPRIL [Concomitant]
  11. FUROSEMIDE [Concomitant]
  12. ALPRAZOLAM [Concomitant]
  13. OXYCODONE [Concomitant]

REACTIONS (4)
  - ARRHYTHMIA [None]
  - ELECTROCARDIOGRAM QT CORRECTED INTERVAL PROLONGED [None]
  - IMPLANTABLE DEFIBRILLATOR MALFUNCTION [None]
  - VENTRICULAR TACHYCARDIA [None]
